FAERS Safety Report 21144141 (Version 2)
Quarter: 2022Q3

REPORT INFORMATION
  Report Type: Spontaneous
  Country: JP (occurrence: JP)
  Receive Date: 20220728
  Receipt Date: 20220913
  Transmission Date: 20221026
  Serious: Yes (Death, Hospitalization)
  Sender: FDA-Public Use
  Company Number: JP-DSJP-DSJ-2022-126495

PATIENT
  Age: 89 Year
  Sex: Male
  Weight: 47 kg

DRUGS (7)
  1. EDOXABAN TOSYLATE [Suspect]
     Active Substance: EDOXABAN TOSYLATE
     Indication: Atrial fibrillation
     Dosage: 30 MG, QD
     Route: 048
     Dates: start: 20210819, end: 20211116
  2. APRINDINE HYDROCHLORIDE [Concomitant]
     Active Substance: APRINDINE HYDROCHLORIDE
     Indication: Arrhythmia
     Dosage: 20 MG, BID
     Route: 048
     Dates: start: 20210819, end: 20211116
  3. BEPRIDIL [Concomitant]
     Active Substance: BEPRIDIL
     Dosage: UNK
     Route: 048
     Dates: end: 20211130
  4. TELMISARTAN [Concomitant]
     Active Substance: TELMISARTAN
     Dosage: UNK
     Route: 048
     Dates: end: 20211116
  5. RABEPRAZOLE SODIUM [Concomitant]
     Active Substance: RABEPRAZOLE SODIUM
     Dosage: UNK
     Route: 048
     Dates: end: 20211116
  6. MIRABEGRON [Concomitant]
     Active Substance: MIRABEGRON
     Dosage: UNK
     Route: 048
     Dates: end: 20211116
  7. SILODOSIN OD [Concomitant]
     Dosage: UNK
     Route: 048
     Dates: end: 20211116

REACTIONS (1)
  - Interstitial lung disease [Fatal]

NARRATIVE: CASE EVENT DATE: 20211115
